FAERS Safety Report 13108910 (Version 1)
Quarter: 2017Q1

REPORT INFORMATION
  Report Type: Spontaneous
  Country: US (occurrence: US)
  Receive Date: 20170112
  Receipt Date: 20170112
  Transmission Date: 20170428
  Serious: Yes (Hospitalization)
  Sender: FDA-Public Use
  Company Number: None

PATIENT
  Age: 67 Year
  Sex: Male

DRUGS (16)
  1. COLCHICINE. [Concomitant]
     Active Substance: COLCHICINE
  2. CELEBREX [Concomitant]
     Active Substance: CELECOXIB
  3. CARVEDILOL. [Concomitant]
     Active Substance: CARVEDILOL
  4. GLEEVEC [Suspect]
     Active Substance: IMATINIB MESYLATE
     Indication: CHRONIC MYELOID LEUKAEMIA
     Route: 048
     Dates: start: 20160325
  5. RIFAMPIN. [Concomitant]
     Active Substance: RIFAMPIN
  6. FLECAINIDE [Concomitant]
     Active Substance: FLECAINIDE
  7. ATORVASTATIN [Concomitant]
     Active Substance: ATORVASTATIN
  8. CLOPIDOGREL [Concomitant]
     Active Substance: CLOPIDOGREL BISULFATE
  9. ELIQUIS [Concomitant]
     Active Substance: APIXABAN
  10. ROSUVASTATIN. [Concomitant]
     Active Substance: ROSUVASTATIN
  11. BUMETANIDE. [Concomitant]
     Active Substance: BUMETANIDE
  12. HYDROCOD/APAP [Concomitant]
  13. OXYCONTIN [Concomitant]
     Active Substance: OXYCODONE HYDROCHLORIDE
  14. GABAPENTIN. [Concomitant]
     Active Substance: GABAPENTIN
  15. ALLOPRUINOL [Concomitant]
  16. PREDNISONE. [Concomitant]
     Active Substance: PREDNISONE

REACTIONS (1)
  - Sepsis [None]

NARRATIVE: CASE EVENT DATE: 20161128
